FAERS Safety Report 14649886 (Version 8)
Quarter: 2018Q4

REPORT INFORMATION
  Report Type: Report from Study
  Country: ES (occurrence: ES)
  Receive Date: 20180316
  Receipt Date: 20181129
  Transmission Date: 20190204
  Serious: Yes (Hospitalization, Other)
  Sender: FDA-Public Use
  Company Number: ES-BAXTER-2018BAX008414

PATIENT
  Age: 23 Year
  Sex: Male

DRUGS (14)
  1. METHOTREXATE SODIUM. [Suspect]
     Active Substance: METHOTREXATE SODIUM
     Dosage: UNK UNK,QCY
     Route: 065
     Dates: start: 20130325, end: 20130725
  2. MERCAPTOPURINE. [Suspect]
     Active Substance: MERCAPTOPURINE
     Indication: ACUTE LYMPHOCYTIC LEUKAEMIA
     Dosage: MAINTENANCE TREATMENT, REGIMEN #1,
     Route: 065
     Dates: start: 20131022
  3. METHOTREXATE SODIUM. [Suspect]
     Active Substance: METHOTREXATE SODIUM
     Indication: PRODUCT USED FOR UNKNOWN INDICATION
     Dosage: MAINTENANCE TREATMENT, REGIMEN #2,
     Route: 065
     Dates: start: 20131022
  4. IMATINIB. [Suspect]
     Active Substance: IMATINIB MESYLATE
     Indication: ACUTE LYMPHOCYTIC LEUKAEMIA
     Dosage: INDUCTION TREATMENT REGIMEN #1; 600 MG, QD
     Route: 065
     Dates: start: 20130212
  5. GENOXAL [Suspect]
     Active Substance: CYCLOPHOSPHAMIDE
     Indication: ACUTE LYMPHOCYTIC LEUKAEMIA
     Dosage: REGIMEN #1, CONDITIONING REGIMEN, 1000 MG, UNK
     Route: 065
     Dates: start: 20130823
  6. VINCRISTINE SULFATE. [Suspect]
     Active Substance: VINCRISTINE SULFATE
     Indication: ACUTE LYMPHOCYTIC LEUKAEMIA
     Dosage: INDUCTION TREATMENT
     Route: 065
     Dates: start: 20130212
  7. METHOTREXATE SODIUM. [Suspect]
     Active Substance: METHOTREXATE SODIUM
     Indication: ACUTE LYMPHOCYTIC LEUKAEMIA
     Dosage: CONSOLIDATION TREATMENT, REGIMEN #1, AT HIGH DOSE
     Route: 065
     Dates: start: 20130323, end: 20130725
  8. METHOTREXATE SODIUM. [Suspect]
     Active Substance: METHOTREXATE SODIUM
     Dosage: UNKNOWN DOSE
     Route: 065
     Dates: start: 20131023
  9. IMATINIB. [Suspect]
     Active Substance: IMATINIB MESYLATE
     Dosage: MAINTENANCE TREATMENT, REGIMEN #3
     Route: 065
     Dates: start: 20131022
  10. ARA-C [Suspect]
     Active Substance: CYTARABINE
     Indication: ACUTE LYMPHOCYTIC LEUKAEMIA
     Dosage: CONSOLIDATION TREATMENT, REGIMEN #1, AT HIGH DOSE
     Route: 051
     Dates: start: 20130325, end: 20130725
  11. PREDNISONE. [Suspect]
     Active Substance: PREDNISONE
     Indication: ACUTE LYMPHOCYTIC LEUKAEMIA
     Dosage: INDUCTION TREATMENT, REGIMEN #1,
     Route: 065
     Dates: start: 20130212
  12. DAUNORUBICIN HYDROCHLORIDE. [Suspect]
     Active Substance: DAUNORUBICIN HYDROCHLORIDE
     Indication: ACUTE LYMPHOCYTIC LEUKAEMIA
     Dosage: INDUCTION TREATMENT
     Route: 065
     Dates: start: 20130212
  13. ARA-C [Suspect]
     Active Substance: CYTARABINE
     Dosage: UNK
     Route: 051
  14. IMATINIB. [Suspect]
     Active Substance: IMATINIB MESYLATE
     Indication: SYSTEMIC SCLERODERMA
     Dosage: CONSOLIDATION TREATMENT, REGIMEN #2; QD
     Route: 065
     Dates: start: 20130325, end: 20130725

REACTIONS (3)
  - Acute lymphocytic leukaemia recurrent [Unknown]
  - Pyrexia [Unknown]
  - Musculoskeletal chest pain [Unknown]

NARRATIVE: CASE EVENT DATE: 20140415
